FAERS Safety Report 6634428-6 (Version None)
Quarter: 2010Q1

REPORT INFORMATION
  Report Type: 
  Country: None (occurrence: None)
  Receive Date: 20100315
  Receipt Date: 20100303
  Transmission Date: 20100710
  Serious: Yes (Hospitalization)
  Sender: FDA-Public Use
  Company Number: JP-ROCHE-690035

PATIENT
  Sex: Male

DRUGS (3)
  1. ACTEMRA [Suspect]
     Indication: POLYARTERITIS NODOSA
     Route: 042
     Dates: start: 20090515
  2. ADRENOCORTICAL HORMONE [Suspect]
     Indication: DRUG USE FOR UNKNOWN INDICATION
     Dosage: DRUG NAME REPORTED AS UNKNOWNDRUG (ADRENOCORTICAL HORMONE PREPARATIONS). DOSE FORM: PERORAL AGENT
     Route: 048
  3. ALENDRONATE SODIUM [Concomitant]
     Dosage: DRUG NAME REPORTED AS ALENDRONATE SODIUM HYDRATE(ALENDRONATE SODIUM HYDRATE)
     Route: 048

REACTIONS (4)
  - ENTEROCOLITIS [None]
  - INTESTINAL OBSTRUCTION [None]
  - PANCREATITIS ACUTE [None]
  - PERITONITIS [None]
